FAERS Safety Report 8200644-5 (Version None)
Quarter: 2012Q1

REPORT INFORMATION
  Report Type: 
  Country: None (occurrence: None)
  Receive Date: 20120222
  Receipt Date: 20120214
  Transmission Date: 20120608
  Serious: Yes (Hospitalization)
  Sender: FDA-Public Use
  Company Number: 2012031131

PATIENT
  Age: 53 Year
  Sex: Female
  Weight: 83.4619 kg

DRUGS (19)
  1. LEVAQUIN [Concomitant]
  2. LOVAZA (FISH OIL) [Concomitant]
  3. VITAMIN B 12 INJECTION (CYANOCOBALAMIN) [Concomitant]
  4. HIZENTRA [Suspect]
     Indication: HYPOGLOBULINAEMIA
  5. VALIUM [Concomitant]
  6. LAMICTAL XR (LAMOTRIGINE) [Concomitant]
  7. DOXYCYCLINE [Concomitant]
  8. CYMBALTA [Concomitant]
  9. TEMAZEPAM [Concomitant]
  10. SINGULAIR [Concomitant]
  11. ULTRAM [Concomitant]
  12. ISOSORBIDE (ISOSORBIDE) [Concomitant]
  13. HIZENTRA [Suspect]
  14. ALBUTEROL [Concomitant]
  15. VITAMIN D [Concomitant]
  16. TORSEMIDE [Concomitant]
  17. IPRAT-ALBUT (COMBIVENT /01261001/) [Concomitant]
  18. NEXIUM [Concomitant]
  19. BYSTOLIC [Concomitant]

REACTIONS (4)
  - INFUSION SITE SWELLING [None]
  - INFUSION SITE PAIN [None]
  - MYOCARDIAL INFARCTION [None]
  - INFUSION SITE ERYTHEMA [None]
